FAERS Safety Report 14327778 (Version 1)
Quarter: 2017Q4

REPORT INFORMATION
  Report Type: Spontaneous
  Country: US (occurrence: US)
  Receive Date: 20171226
  Receipt Date: 20171226
  Transmission Date: 20180321
  Serious: Yes (Other)
  Sender: FDA-Public Use
  Company Number: None

PATIENT
  Age: 69 Year
  Sex: Female

DRUGS (1)
  1. AMPYRA [Suspect]
     Active Substance: DALFAMPRIDINE
     Indication: MULTIPLE SCLEROSIS
     Dosage: 10MG Q12H ORAL
     Route: 048
     Dates: start: 201208, end: 201711

REACTIONS (2)
  - Hepatotoxicity [None]
  - Gait disturbance [None]

NARRATIVE: CASE EVENT DATE: 20171115
